FAERS Safety Report 10059310 (Version 1)
Quarter: 2014Q2

REPORT INFORMATION
  Report Type: Spontaneous
  Country: GR (occurrence: GR)
  Receive Date: 20140404
  Receipt Date: 20140404
  Transmission Date: 20141212
  Serious: Yes (Hospitalization)
  Sender: FDA-Public Use
  Company Number: GR-JNJFOC-20140401717

PATIENT
  Sex: Female

DRUGS (1)
  1. REMICADE [Suspect]
     Indication: ACCIDENTAL EXPOSURE TO PRODUCT
     Route: 042

REACTIONS (2)
  - Pruritus generalised [Recovering/Resolving]
  - Accidental exposure to product [Recovering/Resolving]
